FAERS Safety Report 14848247 (Version 2)
Quarter: 2018Q2

REPORT INFORMATION
  Report Type: Spontaneous
  Country: US (occurrence: US)
  Receive Date: 20180504
  Receipt Date: 20180509
  Transmission Date: 20180711
  Serious: No
  Sender: FDA-Public Use
  Company Number: PHHY2018US001020

PATIENT
  Sex: Female

DRUGS (2)
  1. LATANOPROST. [Concomitant]
     Active Substance: LATANOPROST
     Indication: GLAUCOMA
     Route: 065
  2. SYSTANE NIGHTTIME [Suspect]
     Active Substance: MINERAL OIL\PETROLATUM
     Indication: DRY EYE
     Dosage: UNK
     Route: 047
     Dates: start: 201708

REACTIONS (3)
  - Blepharitis [Recovered/Resolved]
  - Eyelid irritation [Recovered/Resolved]
  - Eyelids pruritus [Recovered/Resolved]

NARRATIVE: CASE EVENT DATE: 20180427
